FAERS Safety Report 9785533 (Version 1)
Quarter: 2013Q4

REPORT INFORMATION
  Report Type: Spontaneous
  Country: US (occurrence: None)
  Receive Date: 20131226
  Receipt Date: 20131226
  Transmission Date: 20140711
  Serious: Yes (Other)
  Sender: FDA-Public Use
  Company Number: None

PATIENT
  Age: 61 Year
  Sex: Female
  Weight: 70.31 kg

DRUGS (1)
  1. SUCRALFATE [Suspect]
     Indication: GASTRITIS
     Dosage: 1   FOUR TIMES DAILY  TAKEN BY MOUTH
     Route: 048
     Dates: start: 20130828, end: 20131101

REACTIONS (3)
  - Rash pruritic [None]
  - Hypercalcaemia [None]
  - Hypervitaminosis D [None]
